APPROVED DRUG PRODUCT: A-HYDROCORT
Active Ingredient: HYDROCORTISONE SODIUM SUCCINATE
Strength: EQ 100MG BASE/VIAL
Dosage Form/Route: INJECTABLE;INJECTION
Application: A085929 | Product #001
Applicant: HOSPIRA INC
Approved: Approved Prior to Jan 1, 1982 | RLD: No | RS: No | Type: DISCN